FAERS Safety Report 7265877-3 (Version None)
Quarter: 2011Q1

REPORT INFORMATION
  Report Type: 
  Country: None (occurrence: None)
  Receive Date: 20110131
  Receipt Date: 20110121
  Transmission Date: 20110831
  Serious: Yes (Hospitalization)
  Sender: FDA-Public Use
  Company Number: B0686181A

PATIENT
  Sex: Female
  Weight: 53 kg

DRUGS (3)
  1. TYKERB [Suspect]
     Indication: BREAST CANCER
     Route: 048
     Dates: start: 20080512, end: 20090510
  2. BONALON [Concomitant]
     Indication: OSTEOPOROSIS
     Dosage: 35MG PER DAY
     Route: 048
     Dates: start: 20090501
  3. AROMASIN [Concomitant]
     Indication: ADJUVANT THERAPY
     Dosage: 25MG PER DAY
     Route: 048
     Dates: start: 20090511

REACTIONS (4)
  - SUBARACHNOID HAEMORRHAGE [None]
  - LOSS OF CONSCIOUSNESS [None]
  - ATRIOVENTRICULAR BLOCK [None]
  - HEAD INJURY [None]
